FAERS Safety Report 13681829 (Version 3)
Quarter: 2017Q3

REPORT INFORMATION
  Report Type: Report from Study
  Country: US (occurrence: US)
  Receive Date: 20170623
  Receipt Date: 20170807
  Transmission Date: 20171127
  Serious: No
  Sender: FDA-Public Use
  Company Number: US-AMGEN-USASP2017092980

PATIENT
  Age: 79 Year
  Sex: Male

DRUGS (10)
  1. ELIQUIS [Concomitant]
     Active Substance: APIXABAN
     Dosage: UNK
  2. DEXAMETHASONE. [Concomitant]
     Active Substance: DEXAMETHASONE
     Dosage: 40 MG, (FOR THREE DAYS)
  3. NPLATE [Suspect]
     Active Substance: ROMIPLOSTIM
     Dosage: 440 MUG, QWK
     Route: 065
  4. ZOLOFT [Concomitant]
     Active Substance: SERTRALINE HYDROCHLORIDE
  5. RITUXAN [Concomitant]
     Active Substance: RITUXIMAB
     Dosage: UNK
  6. NPLATE [Suspect]
     Active Substance: ROMIPLOSTIM
     Dosage: 210 MUG/KG, QWK
     Route: 065
  7. NPLATE [Suspect]
     Active Substance: ROMIPLOSTIM
     Dosage: 315 MUG, QWK
     Route: 065
  8. MULTAQ [Concomitant]
     Active Substance: DRONEDARONE
     Dosage: UNK
  9. IMMUNOGLOBULIN (IMMUNOGLOBULIN HUMAN NORMAL) [Concomitant]
     Active Substance: HUMAN IMMUNOGLOBULIN G
  10. NPLATE [Suspect]
     Active Substance: ROMIPLOSTIM
     Indication: IMMUNE THROMBOCYTOPENIC PURPURA
     Dosage: 105 MUG/KG, QWK
     Route: 065
     Dates: start: 20170605

REACTIONS (9)
  - Headache [Recovered/Resolved]
  - Neck pain [Recovered/Resolved]
  - Peripheral swelling [Unknown]
  - Viral infection [Not Recovered/Not Resolved]
  - Platelet count abnormal [Unknown]
  - Platelet count decreased [Unknown]
  - Swelling [Not Recovered/Not Resolved]
  - Drug effect decreased [Not Recovered/Not Resolved]
  - Dizziness [Not Recovered/Not Resolved]

NARRATIVE: CASE EVENT DATE: 2017
